FAERS Safety Report 4352296-2 (Version None)
Quarter: 2004Q2

REPORT INFORMATION
  Report Type: 
  Country: None (occurrence: None)
  Receive Date: 20040504
  Receipt Date: 20040427
  Transmission Date: 20050107
  Serious: Yes (Death)
  Sender: FDA-Public Use
  Company Number: US-JNJFOC-20040406252

PATIENT
  Sex: Female

DRUGS (6)
  1. NIZORAL [Suspect]
     Indication: DRUG USE FOR UNKNOWN INDICATION
     Route: 065
     Dates: start: 20031001
  2. ZOMETA [Concomitant]
  3. LUPRON [Concomitant]
  4. NILUTAMIDE [Concomitant]
  5. LASIX [Concomitant]
  6. ATENOLOL [Concomitant]

REACTIONS (2)
  - METASTASES TO BONE [None]
  - PROSTATE CANCER [None]
